FAERS Safety Report 4635089-8 (Version None)
Quarter: 2005Q2

REPORT INFORMATION
  Report Type: 
  Country: None (occurrence: None)
  Receive Date: 20050414
  Receipt Date: 20021030
  Transmission Date: 20051028
  Serious: Yes (Disabling)
  Sender: FDA-Public Use
  Company Number: AU-MERCK-0210AUS00194

PATIENT
  Age: 48 Year
  Sex: Female
  Weight: 47 kg

DRUGS (3)
  1. ZOCOR [Suspect]
     Indication: BLOOD CHOLESTEROL INCREASED
     Route: 048
     Dates: start: 20020612, end: 20021018
  2. ANTIMICROBIAL (UNSPECIFIED) [Concomitant]
     Indication: FUNGAL INFECTION
     Route: 065
     Dates: start: 20020512, end: 20021029
  3. OXAZEPAM [Concomitant]
     Indication: SLEEP DISORDER THERAPY
     Route: 065
     Dates: start: 20020612, end: 20021018

REACTIONS (12)
  - DYSKINESIA [None]
  - FACE OEDEMA [None]
  - FATIGUE [None]
  - HEPATIC FUNCTION ABNORMAL [None]
  - HYPOAESTHESIA [None]
  - INSOMNIA [None]
  - MUSCLE SPASMS [None]
  - MUSCLE TIGHTNESS [None]
  - OEDEMA PERIPHERAL [None]
  - PARAESTHESIA [None]
  - SENSATION OF HEAVINESS [None]
  - TREMOR [None]
